FAERS Safety Report 7415021-4 (Version None)
Quarter: 2011Q2

REPORT INFORMATION
  Report Type: 
  Country: None (occurrence: None)
  Receive Date: 20110414
  Receipt Date: 20110404
  Transmission Date: 20111010
  Serious: Yes (Other)
  Sender: FDA-Public Use
  Company Number: US-ROCHE-755102

PATIENT
  Sex: Male
  Weight: 61.2 kg

DRUGS (8)
  1. ALLEGRA [Concomitant]
  2. ACCUTANE [Suspect]
     Indication: ACNE
     Route: 065
     Dates: start: 20060122, end: 20080101
  3. HYOSCYAMINE [Concomitant]
  4. CEPHALEXIN [Concomitant]
  5. SOTRET [Suspect]
     Route: 065
  6. AZITHROMYCIN [Concomitant]
  7. ZYRTEC [Concomitant]
  8. HYDROCORTISONE [Concomitant]

REACTIONS (4)
  - COLITIS ULCERATIVE [None]
  - EMOTIONAL DISTRESS [None]
  - DRY SKIN [None]
  - PAIN [None]
